FAERS Safety Report 9467355 (Version 2)
Quarter: 2013Q4

REPORT INFORMATION
  Report Type: Spontaneous
  Country: US (occurrence: US)
  Receive Date: 20130821
  Receipt Date: 20131223
  Transmission Date: 20140711
  Serious: Yes (Hospitalization)
  Sender: FDA-Public Use
  Company Number: US-BRISTOL-MYERS SQUIBB COMPANY-19199728

PATIENT
  Age: 66 Year
  Sex: Male
  Weight: 58.96 kg

DRUGS (12)
  1. COUMADIN [Suspect]
     Dates: end: 2013
  2. LYRICA [Suspect]
     Indication: NEUROPATHY PERIPHERAL
     Dosage: 3/D, 50MG/D
     Dates: start: 2010, end: 2013
  3. NEORAL [Suspect]
     Indication: LIVER TRANSPLANT
  4. OXCARBAZEPINE [Suspect]
  5. CELLCEPT [Suspect]
  6. PROCARDIA XL [Suspect]
     Indication: BLOOD PRESSURE
     Dosage: REDUCED TO 60 MG DAILY
     Dates: end: 2013
  7. METOPROLOL TARTRATE [Suspect]
     Indication: BLOOD PRESSURE
     Dosage: REDUCED TO 2 TIMES DAY
  8. CELEXA [Suspect]
     Dates: end: 2013
  9. RENVELA [Suspect]
  10. XANAX [Suspect]
  11. WELLBUTRIN [Suspect]
     Dates: end: 2013
  12. OXYCONTIN [Suspect]
     Dates: end: 2013

REACTIONS (5)
  - Renal failure [Unknown]
  - Somnolence [Unknown]
  - Pain in extremity [Unknown]
  - Fall [Unknown]
  - Renal disorder [Unknown]
